FAERS Safety Report 15438620 (Version 3)
Quarter: 2018Q4

REPORT INFORMATION
  Report Type: Spontaneous
  Country: PH (occurrence: PH)
  Receive Date: 20180928
  Receipt Date: 20181109
  Transmission Date: 20190204
  Serious: Yes (Hospitalization, Other)
  Sender: FDA-Public Use
  Company Number: PH-009507513-1809PHL010067

PATIENT
  Sex: Female

DRUGS (1)
  1. IMPLANON [Suspect]
     Active Substance: ETONOGESTREL
     Indication: CONTRACEPTION
     Dosage: 1 DOSAGE FORM
     Route: 059
     Dates: start: 201502, end: 20150705

REACTIONS (6)
  - Haemorrhage urinary tract [Unknown]
  - Menorrhagia [Recovered/Resolved]
  - Uterine leiomyoma [Recovered/Resolved]
  - Full blood count abnormal [Unknown]
  - Headache [Recovered/Resolved]
  - Amenorrhoea [Unknown]

NARRATIVE: CASE EVENT DATE: 2015
